FAERS Safety Report 5151296-2 (Version None)
Quarter: 2006Q4

REPORT INFORMATION
  Report Type: 
  Country: None (occurrence: None)
  Receive Date: 20061114
  Receipt Date: 20061114
  Transmission Date: 20070319
  Serious: Yes (Other)
  Sender: FDA-Public Use
  Company Number: None

PATIENT

DRUGS (1)
  1. FLURBIPROFEN SODIUM [Suspect]
     Indication: SUPERFICIAL INJURY OF EYE
     Dosage: 2 DROPS   6 HOURS  OTHER
     Route: 050
     Dates: start: 20060701, end: 20060701

REACTIONS (3)
  - EXPIRED DRUG ADMINISTERED [None]
  - EYE IRRITATION [None]
  - PHARMACEUTICAL PRODUCT COMPLAINT [None]
